FAERS Safety Report 12504440 (Version 3)
Quarter: 2016Q4

REPORT INFORMATION
  Report Type: Report from Study
  Country: JP (occurrence: JP)
  Receive Date: 20160628
  Receipt Date: 20161020
  Transmission Date: 20170207
  Serious: Yes (Other)
  Sender: FDA-Public Use
  Company Number: JP-INCYTE CORPORATION-2016IN003694

PATIENT
  Age: 80 Year
  Sex: Male
  Weight: 54 kg

DRUGS (4)
  1. JAKAVI [Suspect]
     Active Substance: RUXOLITINIB
     Dosage: 5 MG, BID
     Route: 048
     Dates: start: 20160317, end: 20160417
  2. JAKAVI [Suspect]
     Active Substance: RUXOLITINIB
     Dosage: 10MG, BID
     Route: 048
     Dates: start: 20151102, end: 20160316
  3. JAKAVI [Suspect]
     Active Substance: RUXOLITINIB
     Indication: POLYCYTHAEMIA VERA
     Dosage: 5 MG, BID
     Route: 048
     Dates: start: 20151016, end: 20151101
  4. JAKAVI [Suspect]
     Active Substance: RUXOLITINIB
     Dosage: 7.5 MG, BID
     Route: 048
     Dates: start: 20160418

REACTIONS (3)
  - Bone marrow failure [Unknown]
  - Hepatic function abnormal [Unknown]
  - Anaemia [Recovering/Resolving]

NARRATIVE: CASE EVENT DATE: 20160118
